FAERS Safety Report 21437010 (Version 1)
Quarter: 2022Q4

REPORT INFORMATION
  Report Type: Spontaneous
  Country: PL (occurrence: PL)
  Receive Date: 20221010
  Receipt Date: 20221010
  Transmission Date: 20230113
  Serious: Yes (Other)
  Sender: FDA-Public Use
  Company Number: None

PATIENT
  Age: 65 Year
  Sex: Male
  Weight: 77 kg

DRUGS (1)
  1. TORISEL [Suspect]
     Active Substance: TEMSIROLIMUS
     Dosage: NO INTERVAL
     Route: 042
     Dates: start: 20220720

REACTIONS (5)
  - Anaemia [Recovered/Resolved with Sequelae]
  - Pyrexia [Recovering/Resolving]
  - Infection [Recovering/Resolving]
  - Leukocytosis [Recovering/Resolving]
  - Hepatic failure [Recovered/Resolved with Sequelae]

NARRATIVE: CASE EVENT DATE: 20220810
